FAERS Safety Report 4481965-9 (Version None)
Quarter: 2004Q4

REPORT INFORMATION
  Report Type: 
  Country: None (occurrence: None)
  Receive Date: 20041020
  Receipt Date: 20040929
  Transmission Date: 20050328
  Serious: Yes (Other)
  Sender: FDA-Public Use
  Company Number: GBS041015695

PATIENT
  Age: 76 Year
  Sex: Female

DRUGS (1)
  1. FORTEO [Suspect]
     Indication: OSTEOPOROSIS
     Dosage: 20 UG/1 DAY
     Dates: start: 20040903, end: 20040929

REACTIONS (5)
  - DIZZINESS [None]
  - FALL [None]
  - HYPERHIDROSIS [None]
  - NAUSEA [None]
  - RIB FRACTURE [None]
